FAERS Safety Report 6436144-2 (Version None)
Quarter: 2009Q4

REPORT INFORMATION
  Report Type: 
  Country: None (occurrence: None)
  Receive Date: 20091111
  Receipt Date: 20091105
  Transmission Date: 20100525
  Serious: Yes (Death, Disabling)
  Sender: FDA-Public Use
  Company Number: US-CELGENEUS-163-21880-09060374

PATIENT
  Sex: Female

DRUGS (4)
  1. REVLIMID [Suspect]
     Route: 048
     Dates: start: 20090601, end: 20090629
  2. REVLIMID [Suspect]
     Route: 048
     Dates: start: 20080801, end: 20080101
  3. REVLIMID [Suspect]
     Route: 048
     Dates: start: 20080901, end: 20090501
  4. DECADRON [Concomitant]
     Indication: DRUG USE FOR UNKNOWN INDICATION
     Route: 065

REACTIONS (4)
  - ASTHENIA [None]
  - DECREASED APPETITE [None]
  - MULTIPLE MYELOMA [None]
  - PLATELET COUNT DECREASED [None]
